FAERS Safety Report 11294113 (Version 4)
Quarter: 2016Q2

REPORT INFORMATION
  Report Type: Report from Study
  Country: US (occurrence: US)
  Receive Date: 20150722
  Receipt Date: 20160426
  Transmission Date: 20160815
  Serious: Yes (Other)
  Sender: FDA-Public Use
  Company Number: US-AMGEN-USASL2015042349

PATIENT
  Age: 62 Year
  Sex: Male

DRUGS (1)
  1. KYPROLIS [Suspect]
     Active Substance: CARFILZOMIB
     Indication: PLASMA CELL MYELOMA
     Dosage: UNK
     Route: 042
     Dates: start: 201408

REACTIONS (8)
  - White blood cell count decreased [Unknown]
  - Eye infection viral [Unknown]
  - Oral fungal infection [Unknown]
  - Immune system disorder [Not Recovered/Not Resolved]
  - Laboratory test abnormal [Unknown]
  - Atrial fibrillation [Unknown]
  - Thrombosis [Not Recovered/Not Resolved]
  - Viral infection [Unknown]

NARRATIVE: CASE EVENT DATE: 201504
